FAERS Safety Report 16811804 (Version 4)
Quarter: 2020Q1

REPORT INFORMATION
  Report Type: Spontaneous
  Country: US (occurrence: US)
  Receive Date: 20190916
  Receipt Date: 20200327
  Transmission Date: 20200409
  Serious: Yes (Hospitalization)
  Sender: FDA-Public Use
  Company Number: US-JNJFOC-20190914298

PATIENT
  Sex: Male
  Weight: 61.29 kg

DRUGS (4)
  1. PREDNISONE. [Concomitant]
     Active Substance: PREDNISONE
     Indication: CROHN^S DISEASE
     Route: 048
  2. STELARA [Suspect]
     Active Substance: USTEKINUMAB
     Route: 058
     Dates: start: 2019
  3. STELARA [Suspect]
     Active Substance: USTEKINUMAB
     Route: 042
     Dates: start: 20190725
  4. STELARA [Suspect]
     Active Substance: USTEKINUMAB
     Indication: CROHN^S DISEASE
     Route: 042
     Dates: start: 20190425, end: 201906

REACTIONS (4)
  - Infusion site thrombosis [Recovered/Resolved]
  - Product label issue [Unknown]
  - Intestinal stenosis [Not Recovered/Not Resolved]
  - Infusion site infection [Recovered/Resolved]

NARRATIVE: CASE EVENT DATE: 2019
